APPROVED DRUG PRODUCT: KEMSTRO
Active Ingredient: BACLOFEN
Strength: 20MG **Federal Register determination that product was not discontinued or withdrawn for safety or effectiveness reasons**
Dosage Form/Route: TABLET, ORALLY DISINTEGRATING;ORAL
Application: N021589 | Product #002
Applicant: UCB INC
Approved: Oct 30, 2003 | RLD: Yes | RS: No | Type: DISCN